FAERS Safety Report 8408987-7 (Version None)
Quarter: 2012Q2

REPORT INFORMATION
  Report Type: 
  Country: None (occurrence: None)
  Receive Date: 20120604
  Receipt Date: 20120322
  Transmission Date: 20120825
  Serious: No
  Sender: FDA-Public Use
  Company Number: US-NOVEN-12US004362

PATIENT
  Sex: Female

DRUGS (4)
  1. DAYTRANA [Suspect]
     Dosage: 10MG X3, QD
     Route: 062
     Dates: start: 20120301, end: 20120301
  2. DAYTRANA [Suspect]
     Dosage: 10MG X2, QD
     Route: 062
     Dates: start: 20120301
  3. DAYTRANA [Suspect]
     Dosage: 10MG X2, QD
     Route: 062
     Dates: start: 20120301, end: 20120301
  4. DAYTRANA [Suspect]
     Indication: ATTENTION DEFICIT/HYPERACTIVITY DISORDER
     Dosage: 10 MG, QD
     Route: 062
     Dates: start: 20120301, end: 20120301

REACTIONS (4)
  - WRONG TECHNIQUE IN DRUG USAGE PROCESS [None]
  - FATIGUE [None]
  - PRODUCT QUALITY ISSUE [None]
  - DRUG PRESCRIBING ERROR [None]
